FAERS Safety Report 4395968-6 (Version None)
Quarter: 2004Q3

REPORT INFORMATION
  Report Type: 
  Country: None (occurrence: None)
  Receive Date: 20040707
  Receipt Date: 20040625
  Transmission Date: 20050211
  Serious: Yes (Other)
  Sender: FDA-Public Use
  Company Number: 2002129123IE

PATIENT
  Age: 28 Year
  Sex: Female
  Weight: 100 kg

DRUGS (9)
  1. GENOTROPIN [Suspect]
     Indication: HYPOPITUITARISM
     Dosage: SEE IMAGE
     Route: 058
     Dates: start: 20010710, end: 20020221
  2. GENOTROPIN [Suspect]
     Indication: HYPOPITUITARISM
     Dosage: SEE IMAGE
     Route: 058
     Dates: start: 20020222, end: 20020513
  3. GENOTROPIN [Suspect]
     Indication: HYPOPITUITARISM
     Dosage: SEE IMAGE
     Route: 058
     Dates: start: 20020514
  4. CABERGOLINE [Concomitant]
  5. DIANETTE [Concomitant]
  6. PHENOBARBITONE [Concomitant]
  7. ATENOLOL [Concomitant]
  8. ZIRTEK [Concomitant]
  9. ORLISTAT (ORLISTAT) [Concomitant]

REACTIONS (2)
  - CONDITION AGGRAVATED [None]
  - HYPERCHOLESTEROLAEMIA [None]
